FAERS Safety Report 4783349-2 (Version None)
Quarter: 2005Q3

REPORT INFORMATION
  Report Type: 
  Country: None (occurrence: None)
  Receive Date: 20050914
  Receipt Date: 20040816
  Transmission Date: 20060218
  Serious: Yes (Death)
  Sender: FDA-Public Use
  Company Number: 163-20785-04050223

PATIENT
  Age: 74 Year
  Sex: Female

DRUGS (10)
  1. THALOMID [Suspect]
     Indication: METASTATIC RENAL CELL CARCINOMA
     Dosage: 100 MG, QD AND AT HS, ORAL;  200 MG, QD, ORAL
     Route: 048
     Dates: start: 20040309, end: 20040430
  2. THALOMID [Suspect]
     Indication: METASTATIC RENAL CELL CARCINOMA
     Dosage: 100 MG, QD AND AT HS, ORAL;  200 MG, QD, ORAL
     Route: 048
     Dates: start: 20040503
  3. RADIATION TREATMENT [Suspect]
     Dosage: DAILY
     Dates: start: 20040331, end: 20040413
  4. RADIATION TREATMENT [Suspect]
     Dosage: DAILY
     Dates: start: 20040419, end: 20040429
  5. RADIATION TREATMENT [Suspect]
     Dosage: DAILY
     Dates: start: 20040128
  6. RADIATION TREATMENT [Suspect]
     Dosage: DAILY
     Dates: start: 20040302
  7. HYDROMORPHONE HCL [Concomitant]
  8. OXYCONTIN [Concomitant]
  9. PAMELOR [Concomitant]
  10. MORPHINE [Concomitant]

REACTIONS (4)
  - DISEASE PROGRESSION [None]
  - FEELING ABNORMAL [None]
  - PAIN [None]
  - SOMNOLENCE [None]
